FAERS Safety Report 9321939 (Version 1)
Quarter: 2013Q2

REPORT INFORMATION
  Report Type: Report from Study
  Country: CA (occurrence: CA)
  Receive Date: 20130531
  Receipt Date: 20130531
  Transmission Date: 20140414
  Serious: Yes (Hospitalization, Other)
  Sender: FDA-Public Use
  Company Number: CA-ABBOTT-12P-028-0975835-00

PATIENT
  Age: 68 Year
  Sex: Female
  Weight: 56.75 kg

DRUGS (6)
  1. HUMIRA [Suspect]
     Indication: CROHN^S DISEASE
     Dates: start: 20070502
  2. HUMIRA [Suspect]
     Route: 058
  3. PREDNISONE [Suspect]
     Indication: CROHN^S DISEASE
     Dates: end: 201206
  4. CEPHALEXIN [Concomitant]
     Indication: SKIN ULCER
  5. METHOTREXATE [Concomitant]
     Indication: PRODUCT USED FOR UNKNOWN INDICATION
  6. PAIN MEDICATION [Concomitant]
     Indication: PRODUCT USED FOR UNKNOWN INDICATION

REACTIONS (6)
  - Mobility decreased [Not Recovered/Not Resolved]
  - Post procedural complication [Unknown]
  - Drug effect decreased [Unknown]
  - Headache [Recovered/Resolved]
  - Arthropathy [Unknown]
  - Arthropathy [Unknown]
